FAERS Safety Report 10267260 (Version 1)
Quarter: 2014Q2

REPORT INFORMATION
  Report Type: Spontaneous
  Country: GB (occurrence: GB)
  Receive Date: 20140630
  Receipt Date: 20140630
  Transmission Date: 20141212
  Serious: Yes (Death)
  Sender: FDA-Public Use
  Company Number: GB-TEVA-491481ISR

PATIENT
  Age: 88 Year
  Sex: Male

DRUGS (2)
  1. CIPROFLOXACIN [Suspect]
     Indication: OSTEOMYELITIS
     Route: 065
  2. MEROPENEM [Suspect]
     Indication: OSTEOMYELITIS
     Route: 042

REACTIONS (2)
  - Treatment failure [Fatal]
  - Intervertebral discitis [Fatal]
